FAERS Safety Report 14257796 (Version 7)
Quarter: 2019Q1

REPORT INFORMATION
  Report Type: Report from Study
  Country: KR (occurrence: KR)
  Receive Date: 20171207
  Receipt Date: 20190104
  Transmission Date: 20190417
  Serious: Yes (Hospitalization)
  Sender: FDA-Public Use
  Company Number: KR-ROCHE-2013691

PATIENT
  Age: 51 Year
  Sex: Male
  Weight: 76 kg

DRUGS (12)
  1. VEMURAFENIB. [Suspect]
     Active Substance: VEMURAFENIB
     Indication: MALIGNANT MELANOMA
     Dosage: MOST RECENT DOSE (4 TABLETS TWICE A DAY): 11/SEP/2017?MOST RECENT DOSE (4 TABLETS TWICE A DAY): 29/O
     Route: 048
     Dates: start: 20170711
  2. BLINDED ATEZOLIZUMAB [Suspect]
     Active Substance: ATEZOLIZUMAB
     Indication: MALIGNANT MELANOMA
     Dosage: MOST RECENT DOSE: 05/SEP/2017?MOST RECENT DOSE: 17/OCT/2017
     Route: 042
     Dates: start: 20170808
  3. PELUBI [Concomitant]
     Indication: PAIN
     Route: 065
     Dates: start: 20170711, end: 20170926
  4. PANTOLOC [Concomitant]
     Active Substance: PANTOPRAZOLE SODIUM
     Route: 065
     Dates: start: 20171113, end: 20171125
  5. LASIX [Concomitant]
     Active Substance: FUROSEMIDE
     Indication: GENERALISED OEDEMA
     Route: 065
     Dates: start: 20170926, end: 20171031
  6. CEPHRADINE [Concomitant]
     Active Substance: CEPHRADINE
     Indication: RASH
     Route: 065
     Dates: start: 20170919, end: 20170926
  7. UNASYN (AMPICILLIN SODIUM) [Concomitant]
     Indication: PLEURISY
     Route: 065
     Dates: start: 20171109, end: 20171113
  8. COBIMETINIB. [Suspect]
     Active Substance: COBIMETINIB
     Indication: MALIGNANT MELANOMA
     Dosage: MOST RECENT DOSE OF COBIMETINIB (60 MG; FREQUENCY: OTHER): 11/SEP/2017?MOST RECENT DOSE OF COBIMETIN
     Route: 048
     Dates: start: 20170711
  9. KASHUT [Concomitant]
     Indication: HYPERKALAEMIA
     Route: 065
     Dates: start: 20171111, end: 20171111
  10. PANTOLOC [Concomitant]
     Active Substance: PANTOPRAZOLE SODIUM
     Indication: PROPHYLAXIS
     Route: 065
     Dates: start: 20171109, end: 20171113
  11. SODIUM CHLORIDE. [Concomitant]
     Active Substance: SODIUM CHLORIDE
     Route: 065
     Dates: start: 20171109, end: 20171111
  12. AMOKLAN DUO [Concomitant]
     Indication: PLEURISY
     Route: 065
     Dates: start: 20171113, end: 20171125

REACTIONS (2)
  - Dyspnoea [Recovered/Resolved]
  - Blood creatine phosphokinase increased [Recovered/Resolved]

NARRATIVE: CASE EVENT DATE: 20170725
